FAERS Safety Report 7352787-6 (Version None)
Quarter: 2011Q1

REPORT INFORMATION
  Report Type: 
  Country: None (occurrence: None)
  Receive Date: 20110315
  Receipt Date: 20110308
  Transmission Date: 20110831
  Serious: Yes (Hospitalization, Other)
  Sender: FDA-Public Use
  Company Number: US-ROCHE-717513

PATIENT
  Sex: Female
  Weight: 59 kg

DRUGS (15)
  1. CLARAVIS [Suspect]
     Indication: ACNE
     Route: 048
     Dates: start: 20040528
  2. CLARAVIS [Suspect]
     Route: 048
     Dates: start: 20040909
  3. ACCUTANE [Suspect]
     Indication: ACNE
     Route: 048
     Dates: start: 19990922
  4. ACCUTANE [Suspect]
     Route: 048
     Dates: start: 20040318, end: 20040401
  5. ZYRTEC [Concomitant]
  6. CLARAVIS [Suspect]
     Route: 048
     Dates: start: 20090101
  7. ACCUTANE [Suspect]
     Route: 048
     Dates: start: 20081001, end: 20090317
  8. SOTRET [Suspect]
     Indication: ACNE
     Route: 048
     Dates: start: 20050101
  9. SOTRET [Suspect]
     Route: 048
     Dates: start: 20080101
  10. SOTRET [Suspect]
     Dosage: DOSE: 30 MG.
     Route: 048
     Dates: start: 20090104, end: 20090317
  11. SINGULAIR [Concomitant]
  12. CLARAVIS [Suspect]
     Route: 048
     Dates: start: 20080101
  13. ORTHO TRI-CYCLEN [Concomitant]
  14. ACCUTANE [Suspect]
     Route: 048
     Dates: start: 19991027, end: 20000524
  15. MINOCYCLINE HCL [Concomitant]
     Indication: ACNE
     Dates: start: 20080801, end: 20090127

REACTIONS (11)
  - ORAL HERPES [None]
  - MOOD ALTERED [None]
  - CROHN'S DISEASE [None]
  - DEPRESSION [None]
  - DRY EYE [None]
  - IRON DEFICIENCY ANAEMIA [None]
  - INFECTED CYST [None]
  - PITYRIASIS ALBA [None]
  - ANAL FISSURE [None]
  - INFLAMMATORY BOWEL DISEASE [None]
  - COLITIS [None]
